FAERS Safety Report 6277794-6 (Version None)
Quarter: 2009Q3

REPORT INFORMATION
  Report Type: 
  Country: None (occurrence: None)
  Receive Date: 20090722
  Receipt Date: 20090710
  Transmission Date: 20100115
  Serious: Yes (Other)
  Sender: FDA-Public Use
  Company Number: FR-ELI_LILLY_AND_COMPANY-FR200907002071

PATIENT
  Age: 50 Year
  Sex: Female

DRUGS (5)
  1. CYMBALTA [Suspect]
     Route: 048
  2. XANAX [Concomitant]
  3. THERALENE [Concomitant]
  4. IXEL [Concomitant]
  5. LYRICA [Concomitant]

REACTIONS (2)
  - RENAL FAILURE [None]
  - URINARY RETENTION [None]
